FAERS Safety Report 9247695 (Version 1)
Quarter: 2013Q1

REPORT INFORMATION
  Report Type: Spontaneous
  Country: US (occurrence: None)
  Receive Date: 20121130
  Receipt Date: 20121130
  Transmission Date: 20140127
  Serious: Yes (Disabling, Other)
  Sender: FDA-Public Use
  Company Number: 1111USA02611

PATIENT
  Age: 60 Year
  Sex: Female
  Weight: 70.3 kg

DRUGS (5)
  1. FOSAMAX [Suspect]
     Indication: OSTEOPENIA
     Route: 048
     Dates: start: 20050319
  2. FOSAMAX PLUS D [Suspect]
     Indication: OSTEOPENIA
     Dosage: 70/2800, ORAL
     Dates: start: 20060621, end: 20090125
  3. FOSAMAX [Suspect]
     Indication: OSTEOPENIA
     Route: 048
     Dates: start: 20090617, end: 20100218
  4. BONIVA [Suspect]
     Route: 048
     Dates: start: 20090617, end: 20100218
  5. XANAX (ALPRAZOLAM) [Concomitant]

REACTIONS (28)
  - Osteonecrosis of jaw [None]
  - Depression [None]
  - Anxiety [None]
  - Exostosis of jaw [None]
  - Tooth disorder [None]
  - Tooth fracture [None]
  - Lip neoplasm benign [None]
  - Fibroma [None]
  - Bone disorder [None]
  - Migraine [None]
  - Impaired healing [None]
  - Infection [None]
  - Rectal haemorrhage [None]
  - Bunion [None]
  - Synovial cyst [None]
  - Memory impairment [None]
  - Hypercholesterolaemia [None]
  - Vitamin D deficiency [None]
  - Wrong technique in drug usage process [None]
  - Osteoporosis [None]
  - Breast mass [None]
  - Oral disorder [None]
  - Gastrointestinal pain [None]
  - Abnormal faeces [None]
  - Tooth discolouration [None]
  - Tooth deposit [None]
  - Constipation [None]
  - Mouth ulceration [None]
